FAERS Safety Report 17269714 (Version 2)
Quarter: 2020Q1

REPORT INFORMATION
  Report Type: Report from Study
  Country: JP (occurrence: JP)
  Receive Date: 20200114
  Receipt Date: 20200225
  Transmission Date: 20200409
  Serious: Yes (Death, Other)
  Sender: FDA-Public Use
  Company Number: JP-ALLERGAN-2001352US

PATIENT
  Sex: Male

DRUGS (3)
  1. LINACLOTIDE - BP [Suspect]
     Active Substance: LINACLOTIDE
     Indication: IRRITABLE BOWEL SYNDROME
     Dosage: 0.12 MG, QD, AS APPROPRIATE, PREPRANDIAL
     Route: 048
     Dates: start: 20180308, end: 20180924
  2. LINACLOTIDE - BP [Suspect]
     Active Substance: LINACLOTIDE
     Dosage: 0.5 MG, QD, PREPRANDIAL
     Route: 048
     Dates: start: 20180203, end: 20180203
  3. LINACLOTIDE - BP [Suspect]
     Active Substance: LINACLOTIDE
     Dosage: 0.25 MG, QD, PREPRANDIAL
     Route: 048
     Dates: start: 20180204, end: 20180307

REACTIONS (2)
  - Diarrhoea [Recovering/Resolving]
  - Cardiac failure chronic [Fatal]

NARRATIVE: CASE EVENT DATE: 20180308
